FAERS Safety Report 15308299 (Version 1)
Quarter: 2018Q3

REPORT INFORMATION
  Report Type: Spontaneous
  Country: US (occurrence: US)
  Receive Date: 20180822
  Receipt Date: 20180822
  Transmission Date: 20181010
  Serious: No
  Sender: FDA-Public Use
  Company Number: US-PFIZER INC-2018318898

PATIENT
  Age: 15 Year
  Sex: Male

DRUGS (2)
  1. GENOTROPIN [Suspect]
     Active Substance: SOMATROPIN
     Dosage: 2.0 MG, UNK
     Dates: start: 20170801
  2. GENOTROPIN [Suspect]
     Active Substance: SOMATROPIN
     Dosage: 1.8 MG, DAILY
     Dates: start: 20170830

REACTIONS (7)
  - Blood cholesterol increased [Unknown]
  - Insulin-like growth factor increased [Unknown]
  - Bone density increased [Unknown]
  - Asthenia [Unknown]
  - Low density lipoprotein increased [Unknown]
  - Mean platelet volume decreased [Unknown]
  - Blood testosterone decreased [Unknown]

NARRATIVE: CASE EVENT DATE: 20180819
